FAERS Safety Report 8434730-1 (Version None)
Quarter: 2012Q2

REPORT INFORMATION
  Report Type: 
  Country: None (occurrence: None)
  Receive Date: 20120614
  Receipt Date: 20120605
  Transmission Date: 20120825
  Serious: Yes (Hospitalization)
  Sender: FDA-Public Use
  Company Number: US-ELI_LILLY_AND_COMPANY-US201205002027

PATIENT
  Sex: Female
  Weight: 105.22 kg

DRUGS (3)
  1. HUMALOG MIX 75/25 [Suspect]
     Dosage: 15 U, EACH EVENING
     Route: 058
  2. HUMALOG MIX 75/25 [Suspect]
     Indication: TYPE 2 DIABETES MELLITUS
     Dosage: 35 U, EACH MORNING
     Route: 058
     Dates: start: 20080219
  3. HUMALOG [Suspect]
     Indication: TYPE 2 DIABETES MELLITUS
     Dosage: UNK UNK, UNKNOWN

REACTIONS (2)
  - DYSPNOEA [None]
  - ASTHMA [None]
